FAERS Safety Report 11528855 (Version 1)
Quarter: 2015Q3

REPORT INFORMATION
  Report Type: Spontaneous
  Country: US (occurrence: US)
  Receive Date: 20150921
  Receipt Date: 20150921
  Transmission Date: 20151125
  Serious: No
  Sender: FDA-Public Use
  Company Number: US-PFIZER INC-2015310149

PATIENT
  Age: 70 Year
  Sex: Male
  Weight: 64 kg

DRUGS (3)
  1. VIAGRA [Suspect]
     Active Substance: SILDENAFIL CITRATE
     Indication: ERECTILE DYSFUNCTION
     Dosage: 100MG TABLET, ONE FORTH TABLET (25MG) BY MOUTH AS NEEDED
     Route: 048
  2. VIAGRA [Suspect]
     Active Substance: SILDENAFIL CITRATE
     Dosage: ONE HALF OF A 100MG VIAGRA TABLET (50MG) AND ONE FORTH OF A 100MG VIAGRA TABLET (25MG)
     Route: 048
  3. VIAGRA [Suspect]
     Active Substance: SILDENAFIL CITRATE
     Dosage: HALF OF A 100MG TABLET, 50MG
     Route: 048

REACTIONS (3)
  - Intentional product use issue [Unknown]
  - Anorgasmia [Unknown]
  - Drug effect decreased [Unknown]
